FAERS Safety Report 10168479 (Version 3)
Quarter: 2014Q3

REPORT INFORMATION
  Report Type: Spontaneous
  Country: GB (occurrence: GB)
  Receive Date: 20140513
  Receipt Date: 20140716
  Transmission Date: 20150326
  Serious: Yes (Other)
  Sender: FDA-Public Use
  Company Number: GB-IPSEN BIOPHARMACEUTICALS, INC.-2014-2184

PATIENT
  Age: 35 Year
  Sex: Female

DRUGS (4)
  1. AZZALURE [Suspect]
     Active Substance: BOTULINUM TOXIN TYPE A
     Indication: SKIN WRINKLING
  2. AZZALURE [Suspect]
     Active Substance: BOTULINUM TOXIN TYPE A
     Indication: OFF LABEL USE
  3. AZZALURE [Suspect]
     Active Substance: BOTULINUM TOXIN TYPE A
     Indication: SKIN WRINKLING
  4. AZZALURE [Suspect]
     Active Substance: BOTULINUM TOXIN TYPE A
     Indication: SKIN WRINKLING
     Dosage: 165 UNITS
     Route: 030
     Dates: start: 20140424, end: 20140424

REACTIONS (26)
  - Diplopia [Unknown]
  - Overdose [Unknown]
  - Dysarthria [Recovered/Resolved]
  - Blood sodium decreased [Unknown]
  - Lymphadenopathy [Unknown]
  - Pruritus [Unknown]
  - Headache [Unknown]
  - Diarrhoea [Unknown]
  - Dehydration [Unknown]
  - Productive cough [Unknown]
  - Dyspnoea [Unknown]
  - Muscular weakness [Unknown]
  - Abdominal pain upper [Unknown]
  - Skin swelling [Unknown]
  - Sneezing [Unknown]
  - Influenza like illness [Unknown]
  - Injection site paraesthesia [Unknown]
  - Chest pain [Unknown]
  - Discomfort [Unknown]
  - Ear congestion [Unknown]
  - Nasal congestion [Unknown]
  - Facial paresis [Unknown]
  - Skin exfoliation [Unknown]
  - Pharyngitis [Unknown]
  - Dysphagia [Unknown]
  - Inappropriate schedule of drug administration [Unknown]

NARRATIVE: CASE EVENT DATE: 201404
